FAERS Safety Report 7904783-5 (Version None)
Quarter: 2011Q4

REPORT INFORMATION
  Report Type: 
  Country: None (occurrence: None)
  Receive Date: 20111109
  Receipt Date: 20111027
  Transmission Date: 20120403
  Serious: Yes (Other)
  Sender: FDA-Public Use
  Company Number: PHHY2011BR86837

PATIENT
  Sex: Female

DRUGS (2)
  1. EXFORGE [Suspect]
     Indication: HYPERTENSION
     Dosage: 1 DF (320/10MG) IN THE MORNING
  2. EXFORGE [Suspect]
     Dosage: 2 DF, ((320/10MG) IN THE MORNING AND NIGHT)

REACTIONS (11)
  - NERVOUSNESS [None]
  - DECREASED APPETITE [None]
  - RETCHING [None]
  - ASTHENIA [None]
  - ANAEMIA [None]
  - RESPIRATORY TRACT CONGESTION [None]
  - SPEECH DISORDER [None]
  - BLOOD PRESSURE INCREASED [None]
  - OEDEMA PERIPHERAL [None]
  - DYSSTASIA [None]
  - ABDOMINAL DISCOMFORT [None]
